FAERS Safety Report 21771190 (Version 1)
Quarter: 2022Q4

REPORT INFORMATION
  Report Type: Spontaneous
  Country: US (occurrence: None)
  Receive Date: 20221222
  Receipt Date: 20221222
  Transmission Date: 20230112
  Serious: Yes (Hospitalization)
  Sender: FDA-Public Use
  Company Number: None

PATIENT
  Age: 56 Year
  Sex: Female

DRUGS (1)
  1. FORTEO [Suspect]
     Active Substance: TERIPARATIDE
     Indication: Senile osteoporosis
     Dosage: OTHER STRENGTH : 600MCG/2.4ML;?OTHER QUANTITY : 600MCG/2.4ML;?FREQUENCY : DAILY;?
     Route: 058
     Dates: start: 20221202

REACTIONS (2)
  - Sepsis [None]
  - Nephrolithiasis [None]

NARRATIVE: CASE EVENT DATE: 20221219
